FAERS Safety Report 5944501-3 (Version None)
Quarter: 2008Q4

REPORT INFORMATION
  Report Type: 
  Country: None (occurrence: None)
  Receive Date: 20081107
  Receipt Date: 20081028
  Transmission Date: 20090506
  Serious: Yes (Hospitalization, Other)
  Sender: FDA-Public Use
  Company Number: GB-JNJFOC-20080707082

PATIENT
  Sex: Female
  Weight: 66 kg

DRUGS (3)
  1. REMICADE [Suspect]
     Indication: RHEUMATOID ARTHRITIS
     Route: 042
  2. NAPROXEN [Concomitant]
  3. METHOTREXATE [Concomitant]

REACTIONS (3)
  - BACTERIAL INFECTION [None]
  - BURSITIS [None]
  - INFECTION [None]
